FAERS Safety Report 23488052 (Version 2)
Quarter: 2024Q2

REPORT INFORMATION
  Report Type: Spontaneous
  Country: US (occurrence: US)
  Receive Date: 20240206
  Receipt Date: 20240501
  Transmission Date: 20240716
  Serious: Yes (Hospitalization, Other)
  Sender: FDA-Public Use
  Company Number: US-SPECGX-T202400557

PATIENT
  Sex: Male

DRUGS (2)
  1. FENTANYL CITRATE [Suspect]
     Active Substance: FENTANYL CITRATE
     Indication: Product used for unknown indication
     Dosage: UNK
     Route: 048
  2. AMPICILLIN SODIUM\SULBACTAM SODIUM [Concomitant]
     Active Substance: AMPICILLIN SODIUM\SULBACTAM SODIUM
     Indication: Prophylaxis
     Dosage: UNK
     Route: 065

REACTIONS (10)
  - Pupillary reflex impaired [Unknown]
  - Encephalopathy [Recovering/Resolving]
  - Generalised tonic-clonic seizure [Unknown]
  - Blood glucose increased [Unknown]
  - Respiratory distress [Unknown]
  - Unresponsive to stimuli [Recovering/Resolving]
  - Heart rate increased [Unknown]
  - Accidental overdose [Unknown]
  - Accidental exposure to product by child [Unknown]
  - Endotracheal intubation [Unknown]
